FAERS Safety Report 22371865 (Version 6)
Quarter: 2025Q1

REPORT INFORMATION
  Report Type: Spontaneous
  Country: US (occurrence: US)
  Receive Date: 20230526
  Receipt Date: 20250227
  Transmission Date: 20250409
  Serious: Yes (Other)
  Sender: PFIZER
  Company Number: US-PFIZER INC-PV202300092448

PATIENT
  Age: 74 Year
  Sex: Female
  Weight: 73.5 kg

DRUGS (13)
  1. IBRANCE [Suspect]
     Active Substance: PALBOCICLIB
     Indication: Hormone receptor positive HER2 negative breast cancer
     Dosage: 125 MG, DAILY
     Route: 048
     Dates: start: 20230511
  2. IBRANCE [Suspect]
     Active Substance: PALBOCICLIB
     Dates: start: 20230515
  3. IBRANCE [Suspect]
     Active Substance: PALBOCICLIB
     Route: 048
     Dates: start: 20230621
  4. IBRANCE [Suspect]
     Active Substance: PALBOCICLIB
     Route: 048
  5. ACETAMINOPHEN [Concomitant]
     Active Substance: ACETAMINOPHEN
  6. CITALOPRAM [Concomitant]
     Active Substance: CITALOPRAM
  7. FLUTICASONE PROPIONATE [Concomitant]
     Active Substance: FLUTICASONE PROPIONATE
  8. LETROZOLE [Concomitant]
     Active Substance: LETROZOLE
     Dates: start: 20230515
  9. LEVOTHYROXINE [Concomitant]
     Active Substance: LEVOTHYROXINE
  10. OMEPRAZOLE [Concomitant]
     Active Substance: OMEPRAZOLE
  11. ROSUVASTATIN [Concomitant]
     Active Substance: ROSUVASTATIN
  12. VITAMIN C [Concomitant]
     Active Substance: ASCORBIC ACID
  13. ZYRTEC [Concomitant]
     Active Substance: CETIRIZINE HYDROCHLORIDE

REACTIONS (4)
  - Neutropenia [Unknown]
  - Off label use [Unknown]
  - Fatigue [Unknown]
  - Anxiety [Unknown]

NARRATIVE: CASE EVENT DATE: 20230501
